FAERS Safety Report 9343198 (Version 2)
Quarter: 2013Q3

REPORT INFORMATION
  Report Type: Spontaneous
  Country: US (occurrence: US)
  Receive Date: 20130611
  Receipt Date: 20130702
  Transmission Date: 20140515
  Serious: Yes (Death, Hospitalization)
  Sender: FDA-Public Use
  Company Number: US-US-EMD SERONO, INC.-7216341

PATIENT
  Age: 62 Year
  Sex: Female

DRUGS (1)
  1. REBIF [Suspect]
     Indication: MULTIPLE SCLEROSIS
     Route: 058
     Dates: start: 20071221, end: 20130603

REACTIONS (11)
  - Acute respiratory failure [Fatal]
  - Toxic encephalopathy [Fatal]
  - Hypoglycaemia [Unknown]
  - Urinary tract infection [Unknown]
  - Hypophagia [Unknown]
  - Foot fracture [Unknown]
  - Fall [Unknown]
  - Wrist fracture [Unknown]
  - Contusion [Unknown]
  - Walking disability [Unknown]
  - Muscle spasms [Unknown]
